FAERS Safety Report 22366898 (Version 1)
Quarter: 2023Q2

REPORT INFORMATION
  Report Type: Report from Study
  Country: US (occurrence: US)
  Receive Date: 20230525
  Receipt Date: 20230525
  Transmission Date: 20230722
  Serious: Yes (Hospitalization)
  Sender: FDA-Public Use
  Company Number: US-002147023-NVSC2023US118842

PATIENT
  Sex: Female

DRUGS (1)
  1. ILARIS [Suspect]
     Active Substance: CANAKINUMAB
     Indication: Pyrexia
     Dosage: 150 MG, Q2W (ONCE EVERY TWO WEEKS) (OTHER)
     Route: 058
     Dates: start: 20191009

REACTIONS (4)
  - Pyrexia [Unknown]
  - Malaise [Unknown]
  - Cough [Unknown]
  - Inappropriate schedule of product administration [Unknown]
